FAERS Safety Report 21377289 (Version 1)
Quarter: 2022Q3

REPORT INFORMATION
  Report Type: Spontaneous
  Country: BR (occurrence: BR)
  Receive Date: 20220926
  Receipt Date: 20220926
  Transmission Date: 20221027
  Serious: Yes (Life-Threatening, Hospitalization, Other)
  Sender: FDA-Public Use
  Company Number: BR-BAYER-2022A132334

PATIENT
  Sex: Female

DRUGS (1)
  1. KYLEENA [Suspect]
     Active Substance: LEVONORGESTREL
     Dosage: 17.5?G/DAY
     Route: 015

REACTIONS (8)
  - Ectopic pregnancy with contraceptive device [Recovered/Resolved with Sequelae]
  - Abdominal pain lower [Recovered/Resolved with Sequelae]
  - Amenorrhoea [None]
  - Drug ineffective [None]
  - Syncope [None]
  - Syncope [None]
  - Intra-abdominal haemorrhage [None]
  - Ruptured ectopic pregnancy [None]

NARRATIVE: CASE EVENT DATE: 20220910
